FAERS Safety Report 9313638 (Version 2)
Quarter: 2013Q3

REPORT INFORMATION
  Report Type: Spontaneous
  Country: DK (occurrence: DK)
  Receive Date: 20130528
  Receipt Date: 20130711
  Transmission Date: 20140515
  Serious: Yes (Hospitalization, Other)
  Sender: FDA-Public Use
  Company Number: DK-ELI_LILLY_AND_COMPANY-DK201301002909

PATIENT
  Age: 80 Year
  Sex: Male

DRUGS (12)
  1. CEPHALEXIN HYDROCHLORIDE [Suspect]
     Dosage: 1 G, TID
  2. CEFUROXIME [Concomitant]
     Dosage: 1.5 G, OTHER
     Route: 042
  3. CEFUROXIME [Concomitant]
     Dosage: 750 MG, QID FOR 5 DAYS
  4. VANCOMYCIN [Concomitant]
     Indication: PSEUDOMEMBRANOUS COLITIS
     Dosage: UNK
     Route: 048
  5. BICALUTAMIDE [Concomitant]
  6. SOLIFENACIN [Concomitant]
  7. TAMSULOSIN [Concomitant]
  8. SIMVASTATIN [Concomitant]
  9. LOSARTAN [Concomitant]
  10. CLOPIDOGREL [Concomitant]
  11. DICLOXACILLIN [Concomitant]
     Dosage: 2 G, OTHER
     Route: 042
  12. METRONIDAZOLE [Concomitant]

REACTIONS (5)
  - Pseudomembranous colitis [Unknown]
  - Constipation [Unknown]
  - Sepsis [Unknown]
  - Hypotension [Unknown]
  - Renal failure [Unknown]
